FAERS Safety Report 24960528 (Version 1)
Quarter: 2025Q1

REPORT INFORMATION
  Report Type: Spontaneous
  Country: US (occurrence: US)
  Receive Date: 20250212
  Receipt Date: 20250212
  Transmission Date: 20250408
  Serious: Yes (Hospitalization, Disabling, Other)
  Sender: ELI LILLY AND COMPANY
  Company Number: US-ELI_LILLY_AND_COMPANY-US202502001238

PATIENT
  Age: 53 Year
  Sex: Female

DRUGS (3)
  1. HUMALOG [Suspect]
     Active Substance: INSULIN LISPRO
     Indication: Diabetes mellitus
     Route: 065
  2. INSULIN LISPRO [Suspect]
     Active Substance: INSULIN LISPRO
     Indication: Product used for unknown indication
     Route: 065
  3. LANTUS [Concomitant]
     Active Substance: INSULIN GLARGINE
     Indication: Product used for unknown indication

REACTIONS (7)
  - Blindness [Unknown]
  - Neuropathy peripheral [Recovering/Resolving]
  - Hypertension [Recovering/Resolving]
  - Blood glucose increased [Recovering/Resolving]
  - Gas gangrene [Unknown]
  - Bed bug infestation [Unknown]
  - Gait disturbance [Unknown]

NARRATIVE: CASE EVENT DATE: 20250202
